FAERS Safety Report 5387039-7 (Version None)
Quarter: 2007Q3

REPORT INFORMATION
  Report Type: 
  Country: None (occurrence: None)
  Receive Date: 20070713
  Receipt Date: 20070704
  Transmission Date: 20080115
  Serious: Yes (Other)
  Sender: FDA-Public Use
  Company Number: IT-ABBOTT-07P-083-0364157-00

PATIENT
  Age: 36 Year
  Sex: Male

DRUGS (1)
  1. HUMIRA [Suspect]
     Indication: RHEUMATOID ARTHRITIS
     Route: 058
     Dates: start: 20050616, end: 20051201

REACTIONS (2)
  - CARCINOID TUMOUR PULMONARY [None]
  - HAEMOPTYSIS [None]
